FAERS Safety Report 8406312-9 (Version None)
Quarter: 2012Q2

REPORT INFORMATION
  Report Type: 
  Country: None (occurrence: None)
  Receive Date: 20120529
  Receipt Date: 20060113
  Transmission Date: 20120825
  Serious: Yes (Other)
  Sender: FDA-Public Use
  Company Number: JP-2012-12245

PATIENT

DRUGS (2)
  1. CATACLOT (OZAGREL SODIUM) [Concomitant]
  2. PLETAL [Suspect]

REACTIONS (2)
  - VISUAL ACUITY REDUCED [None]
  - RETINAL HAEMORRHAGE [None]
